FAERS Safety Report 9104880 (Version 1)
Quarter: 2013Q1

REPORT INFORMATION
  Report Type: Spontaneous
  Country: CA (occurrence: CA)
  Receive Date: 20130219
  Receipt Date: 20130219
  Transmission Date: 20140127
  Serious: Yes (Other)
  Sender: FDA-Public Use
  Company Number: PHHY2013CA009220

PATIENT
  Age: 64 Year
  Sex: Female

DRUGS (3)
  1. AFINITOR [Suspect]
     Indication: BREAST CANCER METASTATIC
     Dosage: 10 MG, DAILY
     Route: 048
     Dates: start: 20121228
  2. AFINITOR [Suspect]
     Dosage: 5 MG
     Route: 048
     Dates: end: 201301
  3. AROMASIN [Concomitant]
     Dates: start: 20121220

REACTIONS (8)
  - Angina pectoris [Recovering/Resolving]
  - Mucosal inflammation [Unknown]
  - Diarrhoea [Unknown]
  - Chest pain [Recovering/Resolving]
  - Stomatitis [Unknown]
  - Dyspnoea [Unknown]
  - Fatigue [Unknown]
  - Liver function test abnormal [Not Recovered/Not Resolved]
